FAERS Safety Report 25009127 (Version 1)
Quarter: 2025Q1

REPORT INFORMATION
  Report Type: Spontaneous
  Country: CN (occurrence: CN)
  Receive Date: 20250225
  Receipt Date: 20250225
  Transmission Date: 20250409
  Serious: Yes (Other)
  Sender: PFIZER
  Company Number: CN-PFIZER INC-PV202500021214

PATIENT
  Age: 12 Year
  Sex: Male
  Weight: 38.3 kg

DRUGS (2)
  1. METHOTREXATE SODIUM [Suspect]
     Active Substance: METHOTREXATE SODIUM
     Indication: Leukaemia
     Dosage: 4260 MG, 1X/DAY
     Route: 041
     Dates: start: 20250127, end: 20250128
  2. DASATINIB [Concomitant]
     Active Substance: DASATINIB

REACTIONS (6)
  - Anal fissure [Unknown]
  - Faeces discoloured [Unknown]
  - Mouth ulceration [Not Recovered/Not Resolved]
  - Pyrexia [Unknown]
  - Vomiting [Recovering/Resolving]
  - Erythema [Unknown]

NARRATIVE: CASE EVENT DATE: 20250202
